FAERS Safety Report 12664189 (Version 1)
Quarter: 2016Q3

REPORT INFORMATION
  Report Type: Spontaneous
  Country: CH (occurrence: CH)
  Receive Date: 20160818
  Receipt Date: 20160818
  Transmission Date: 20161109
  Serious: Yes (Other)
  Sender: FDA-Public Use
  Company Number: CH-GLAXOSMITHKLINE-CH2016GSK119198

PATIENT
  Age: 53 Year
  Sex: Male

DRUGS (27)
  1. STAVUDINE. [Suspect]
     Active Substance: STAVUDINE
     Indication: HIV INFECTION
     Dosage: UNK
     Dates: start: 1997, end: 2001
  2. INDINAVIR [Suspect]
     Active Substance: INDINAVIR
     Indication: HIV INFECTION
     Dosage: UNK
     Dates: start: 1997, end: 1998
  3. DIDANOSINE. [Concomitant]
     Active Substance: DIDANOSINE
     Indication: ANTIVIRAL TREATMENT
     Dosage: UNK
     Dates: start: 2002, end: 2003
  4. VALGANCICLOVIR. [Concomitant]
     Active Substance: VALGANCICLOVIR
     Indication: PROPHYLAXIS AGAINST TRANSPLANT REJECTION
  5. EFAVIRENZ [Concomitant]
     Active Substance: EFAVIRENZ
     Indication: ANTIVIRAL TREATMENT
     Dosage: UNK
     Dates: start: 2002
  6. DOLUTEGRAVIR [Suspect]
     Active Substance: DOLUTEGRAVIR
     Indication: ANTIRETROVIRAL THERAPY
     Dosage: UNK
     Dates: start: 201601
  7. RILPIVIRINE [Suspect]
     Active Substance: RILPIVIRINE
     Indication: ANTIVIRAL TREATMENT
     Dosage: UNK
     Dates: start: 2013
  8. ABACAVIR. [Concomitant]
     Active Substance: ABACAVIR
     Indication: ANTIVIRAL TREATMENT
     Dosage: UNK
     Dates: start: 2002
  9. TENOFOVIR DISOPROXIL FUMARATE. [Concomitant]
     Active Substance: TENOFOVIR DISOPROXIL FUMARATE
     Indication: ANTIVIRAL TREATMENT
     Dosage: UNK
     Dates: start: 2003
  10. EMTRICITABINE [Concomitant]
     Active Substance: EMTRICITABINE
     Dosage: UNK
     Dates: start: 201510
  11. SULFAMETHOXAZOLE AND TRIMETHOPRIM [Concomitant]
     Active Substance: SULFAMETHOXAZOLE\TRIMETHOPRIM
     Indication: PROPHYLAXIS AGAINST TRANSPLANT REJECTION
  12. ENFUVIRTIDE [Concomitant]
     Active Substance: ENFUVIRTIDE
     Indication: ANTIRETROVIRAL THERAPY
     Dosage: UNK
     Dates: start: 201510
  13. TACROLIMUS. [Suspect]
     Active Substance: TACROLIMUS
     Indication: IMMUNOSUPPRESSION
     Dosage: UNK
     Dates: start: 201510
  14. TENOFOVIR DISOPROXIL FUMARATE. [Concomitant]
     Active Substance: TENOFOVIR DISOPROXIL FUMARATE
     Dosage: UNK
     Dates: start: 201601
  15. RALTEGRAVIR. [Concomitant]
     Active Substance: RALTEGRAVIR
     Indication: ANTIVIRAL TREATMENT
     Dosage: UNK
     Dates: start: 201510
  16. ZIDOVUDINE. [Suspect]
     Active Substance: ZIDOVUDINE
     Indication: HIV INFECTION
     Dosage: UNK
     Dates: start: 1992
  17. RILPIVIRINE [Suspect]
     Active Substance: RILPIVIRINE
     Dosage: UNK
     Dates: start: 201510
  18. RILPIVIRINE [Suspect]
     Active Substance: RILPIVIRINE
     Dosage: UNK
     Dates: start: 201601
  19. ZALCITABINE [Suspect]
     Active Substance: ZALCITABINE
     Indication: HIV INFECTION
     Dosage: UNK
     Dates: start: 1992
  20. TENOFOVIR DISOPROXIL FUMARATE. [Concomitant]
     Active Substance: TENOFOVIR DISOPROXIL FUMARATE
     Dosage: UNK
     Dates: start: 201510
  21. MYCOPHENOLATE MOFETIL. [Concomitant]
     Active Substance: MYCOPHENOLATE MOFETIL
     Indication: IMMUNOSUPPRESSION
     Dosage: UNK
     Dates: start: 201510
  22. BASILIXIMAB [Concomitant]
     Active Substance: BASILIXIMAB
     Indication: PRODUCT USED FOR UNKNOWN INDICATION
  23. LAMIVUDINE. [Suspect]
     Active Substance: LAMIVUDINE
     Indication: HIV INFECTION
     Dosage: UNK
     Dates: start: 1997, end: 2001
  24. NELFINAVIR MESYLATE [Suspect]
     Active Substance: NELFINAVIR MESYLATE
     Indication: ANTIVIRAL TREATMENT
     Dosage: UNK
     Dates: start: 1998, end: 2001
  25. EMTRICITABINE [Concomitant]
     Active Substance: EMTRICITABINE
     Indication: ANTIVIRAL TREATMENT
     Dosage: UNK
     Dates: start: 2013
  26. TENOFOVIR DISOPROXIL FUMARATE. [Concomitant]
     Active Substance: TENOFOVIR DISOPROXIL FUMARATE
     Dosage: UNK
     Dates: start: 2013
  27. EMTRICITABINE [Concomitant]
     Active Substance: EMTRICITABINE
     Dosage: UNK
     Dates: start: 201601

REACTIONS (5)
  - Drug resistance [Unknown]
  - Viral mutation identified [Unknown]
  - Drug level decreased [Unknown]
  - Pathogen resistance [Unknown]
  - Antiviral drug level above therapeutic [Unknown]
